FAERS Safety Report 4350040-6 (Version None)
Quarter: 2004Q2

REPORT INFORMATION
  Report Type: 
  Country: None (occurrence: None)
  Receive Date: 20040428
  Receipt Date: 20040428
  Transmission Date: 20050107
  Serious: Yes (Hospitalization)
  Sender: FDA-Public Use
  Company Number: None

PATIENT
  Sex: Male
  Weight: 97.977 kg

DRUGS (14)
  1. DIAZEPAM [Suspect]
     Dosage: FILLED 1/28/04
  2. OXYCODONE HCL [Suspect]
     Indication: PAIN
     Dosage: FILLED 2/2804
  3. BENZONATATE [Concomitant]
  4. CITALOPRAM HYDROBROMIDE [Concomitant]
  5. RABEPRAZOLE SODIUM [Concomitant]
  6. DIAZEPAM [Concomitant]
  7. DOCUSATE CA [Concomitant]
  8. GABAPENTIN [Concomitant]
  9. HEPATITIS A /HEPATITIS B VACCINE [Concomitant]
  10. LISINOPRIL [Concomitant]
  11. MULTI-VITAMIN [Concomitant]
  12. OLANZAPINE [Concomitant]
  13. OXYCODONE HCL [Concomitant]
  14. QUETIAPINE FUMARATE [Concomitant]

REACTIONS (4)
  - BLOOD CREATINE PHOSPHOKINASE INCREASED [None]
  - BLOOD POTASSIUM INCREASED [None]
  - COMA [None]
  - HYPOTHERMIA [None]
